FAERS Safety Report 10245176 (Version 1)
Quarter: 2014Q2

REPORT INFORMATION
  Report Type: Spontaneous
  Country: PT (occurrence: PT)
  Receive Date: 20140618
  Receipt Date: 20140618
  Transmission Date: 20141212
  Serious: Yes (Other)
  Sender: FDA-Public Use
  Company Number: PT-WATSON-2014-13622

PATIENT
  Sex: Male

DRUGS (3)
  1. PREDNISOLONE (UNKNOWN) [Suspect]
     Indication: PEMPHIGOID
     Dosage: 0.75 MG/KG, DAILY
     Route: 065
  2. RITUXIMAB [Concomitant]
     Indication: PEMPHIGOID
     Dosage: 375 MG/M2, 1/WEEK
     Route: 065
  3. DAPSONE [Concomitant]
     Indication: PEMPHIGOID
     Dosage: 100 MG, DAILY
     Route: 065

REACTIONS (5)
  - Major depression [Unknown]
  - Hypertension [Unknown]
  - Diabetes mellitus [Unknown]
  - Cataract [Unknown]
  - Osteoporosis [Unknown]
